FAERS Safety Report 6375524-0 (Version None)
Quarter: 2009Q3

REPORT INFORMATION
  Report Type: 
  Country: None (occurrence: None)
  Receive Date: 20090924
  Receipt Date: 20090916
  Transmission Date: 20100115
  Serious: Yes (Other)
  Sender: FDA-Public Use
  Company Number: CA-ELI_LILLY_AND_COMPANY-CA200905005030

PATIENT
  Age: 63 Year
  Sex: Female

DRUGS (4)
  1. FORTEO [Suspect]
     Indication: OSTEOPOROSIS
     Dosage: 20 UG, DAILY (1/D)
     Route: 058
     Dates: start: 20090514, end: 20090729
  2. CALCIUM [Concomitant]
  3. VITAMIN D [Concomitant]
  4. ROCALTROL [Concomitant]

REACTIONS (4)
  - BRAIN NEOPLASM BENIGN [None]
  - DIZZINESS [None]
  - HEADACHE [None]
  - SLEEP DISORDER [None]
